FAERS Safety Report 17375877 (Version 2)
Quarter: 2020Q1

REPORT INFORMATION
  Report Type: Spontaneous
  Country: CZ (occurrence: CZ)
  Receive Date: 20200206
  Receipt Date: 20200224
  Transmission Date: 20200409
  Serious: Yes (Hospitalization, Other)
  Sender: FDA-Public Use
  Company Number: CZ-ROCHE-2538392

PATIENT
  Age: 56 Year
  Sex: Male

DRUGS (9)
  1. RITUXIMAB. [Suspect]
     Active Substance: RITUXIMAB
     Indication: MANTLE CELL LYMPHOMA
     Dosage: INITIATED RESCUE THERAPY WITH PLATINUM REGIMEN (R-ICE; RITUXIMAB, IPHOSPHAMIDE, CARBOPLATIN, ETOPOSI
     Route: 065
  2. IFOSFAMIDE. [Suspect]
     Active Substance: IFOSFAMIDE
     Indication: MANTLE CELL LYMPHOMA
     Dosage: UNK, CYCLIC
     Route: 065
  3. BENDAMUSTINE [Suspect]
     Active Substance: BENDAMUSTINE
     Indication: MANTLE CELL LYMPHOMA
     Dosage: SECOND CYCLE OF R-B?FOLLOWING CYCLE OF HD ARAC WAS THUS FORTIFIED WITH BENDAMUSTINE (SO CALLED R-BAC
     Route: 065
     Dates: start: 201901
  4. CARMUSTINE. [Concomitant]
     Active Substance: CARMUSTINE
  5. CYTARABINE. [Suspect]
     Active Substance: CYTARABINE
     Indication: MANTLE CELL LYMPHOMA
     Dosage: HIGH DOSE CYTARABINE (HD ARAC) WITH RITUXIMAB?FOLLOWING CYCLE OF HD ARAC WAS FORTIFIED WITH BENDAMUS
     Route: 065
     Dates: start: 201902
  6. ETOPOSIDE. [Suspect]
     Active Substance: ETOPOSIDE
     Indication: MANTLE CELL LYMPHOMA
     Dosage: UNK, CYCLIC
     Route: 065
  7. CARBOPLATIN. [Suspect]
     Active Substance: CARBOPLATIN
     Indication: MANTLE CELL LYMPHOMA
     Dosage: UNK, CYCLIC
     Route: 065
  8. MELPHALAN. [Concomitant]
     Active Substance: MELPHALAN
  9. METHOTREXATE. [Suspect]
     Active Substance: METHOTREXATE
     Indication: MANTLE CELL LYMPHOMA
     Dosage: ONE CYCLE OF HIGH DOSE METHOTREXATE (HD MTX)?TWO CYCLES OF CNS PENETRATING CHEMOTHERAPY (MTX AND ARA
     Route: 065
     Dates: start: 201901

REACTIONS (5)
  - Renal failure [Unknown]
  - Malignant neoplasm progression [Unknown]
  - Off label use [Unknown]
  - Product use in unapproved indication [Unknown]
  - Mantle cell lymphoma [Unknown]
